FAERS Safety Report 20512887 (Version 15)
Quarter: 2024Q2

REPORT INFORMATION
  Report Type: Other
  Country: CA (occurrence: None)
  Receive Date: 20220224
  Receipt Date: 20240515
  Transmission Date: 20240715
  Serious: No
  Sender: FDA-Public Use
  Company Number: CA-ROCHE-3025329

PATIENT
  Age: 52 Year
  Sex: Female

DRUGS (3)
  1. OCREVUS [Suspect]
     Active Substance: OCRELIZUMAB
     Indication: Relapsing-remitting multiple sclerosis
     Dosage: MORE DOSAGE INFORMATION IS 300 MG AT DAY 0 AND 14, THEN 600 MG EVERY 6 MONTHS, HOLD TREATMENT
     Route: 042
     Dates: start: 20190717
  2. TYLENOL [Concomitant]
     Active Substance: ACETAMINOPHEN
  3. NASONEX [Concomitant]
     Active Substance: MOMETASONE FUROATE

REACTIONS (16)
  - Bronchitis [Recovered/Resolved]
  - COVID-19 [Recovered/Resolved]
  - Fatigue [Unknown]
  - Muscle spasms [Recovered/Resolved]
  - Electric shock [Recovered/Resolved]
  - Secretion discharge [Not Recovered/Not Resolved]
  - Muscular weakness [Not Recovered/Not Resolved]
  - Pain of skin [Not Recovered/Not Resolved]
  - Muscle spasms [Unknown]
  - Headache [Unknown]
  - Sinusitis [Recovered/Resolved]
  - Ear infection [Not Recovered/Not Resolved]
  - Nodule [Recovered/Resolved]
  - Osteoarthritis [Not Recovered/Not Resolved]
  - Hypoaesthesia [Not Recovered/Not Resolved]
  - Headache [Not Recovered/Not Resolved]

NARRATIVE: CASE EVENT DATE: 20220217
